FAERS Safety Report 24435363 (Version 1)
Quarter: 2024Q4

REPORT INFORMATION
  Report Type: Spontaneous
  Country: US (occurrence: US)
  Receive Date: 20241015
  Receipt Date: 20241015
  Transmission Date: 20250114
  Serious: No
  Sender: ROCHE
  Company Number: US-ROCHE-10000100785

PATIENT
  Sex: Female

DRUGS (1)
  1. ACTEMRA [Suspect]
     Active Substance: TOCILIZUMAB
     Indication: Rheumatoid arthritis
     Route: 058
     Dates: start: 202410

REACTIONS (5)
  - Drug ineffective [Unknown]
  - Joint swelling [Unknown]
  - Arthralgia [Unknown]
  - Fall [Unknown]
  - Rheumatoid arthritis [Unknown]
